FAERS Safety Report 24223130 (Version 1)
Quarter: 2024Q3

REPORT INFORMATION
  Report Type: Spontaneous
  Country: US (occurrence: US)
  Receive Date: 20240819
  Receipt Date: 20240819
  Transmission Date: 20241017
  Serious: Yes (Hospitalization, Other)
  Sender: PFIZER
  Company Number: US-PFIZER INC-202400236678

PATIENT
  Age: 68 Year
  Sex: Male
  Weight: 64.86 kg

DRUGS (1)
  1. VYNDAMAX [Suspect]
     Active Substance: TAFAMIDIS
     Indication: Acquired ATTR amyloidosis
     Dosage: 61 MG, 1X/DAY
     Route: 048
     Dates: start: 202207, end: 20240704

REACTIONS (14)
  - Hip fracture [Unknown]
  - Fall [Unknown]
  - Unresponsive to stimuli [Not Recovered/Not Resolved]
  - Dyspnoea [Recovered/Resolved]
  - Cough [Recovered/Resolved]
  - Oedema due to cardiac disease [Recovered/Resolved]
  - Liver disorder [Unknown]
  - Ammonia increased [Unknown]
  - Somnolence [Unknown]
  - Decubitus ulcer [Unknown]
  - Cardiac disorder [Recovered/Resolved]
  - Calciphylaxis [Unknown]
  - Carpal tunnel syndrome [Not Recovered/Not Resolved]
  - Decreased appetite [Unknown]

NARRATIVE: CASE EVENT DATE: 20240101
